FAERS Safety Report 5430611-6 (Version None)
Quarter: 2007Q3

REPORT INFORMATION
  Report Type: 
  Country: None (occurrence: None)
  Receive Date: 20070830
  Receipt Date: 20070829
  Transmission Date: 20080115
  Serious: Yes (Other)
  Sender: FDA-Public Use
  Company Number: GB-BRISTOL-MYERS SQUIBB COMPANY-13814553

PATIENT
  Age: 58 Year
  Sex: Male

DRUGS (7)
  1. PRAVASTATIN SODIUM [Suspect]
  2. SIMVASTATIN [Suspect]
  3. AMLODIPINE [Concomitant]
  4. BISOPROLOL [Concomitant]
  5. RAMIPRIL [Concomitant]
  6. SPIRONOLACTONE [Concomitant]
  7. WARFARIN [Concomitant]

REACTIONS (1)
  - GUILLAIN-BARRE SYNDROME [None]
